FAERS Safety Report 21987729 (Version 1)
Quarter: 2023Q1

REPORT INFORMATION
  Report Type: Spontaneous
  Country: HU (occurrence: HU)
  Receive Date: 20230214
  Receipt Date: 20230214
  Transmission Date: 20230417
  Serious: Yes (Other)
  Sender: FDA-Public Use
  Company Number: HU-CELLTRION INC.-2023HU002792

PATIENT

DRUGS (6)
  1. RITUXIMAB [Suspect]
     Active Substance: RITUXIMAB
     Indication: Angiocentric lymphoma
  2. VINCRISTINE [Concomitant]
     Active Substance: VINCRISTINE
  3. BRENTUXIMAB VEDOTIN [Concomitant]
     Active Substance: BRENTUXIMAB VEDOTIN
  4. CYCLOPHOSPHAMIDE [Concomitant]
     Active Substance: CYCLOPHOSPHAMIDE
  5. DOXORUBICIN [Concomitant]
     Active Substance: DOXORUBICIN
  6. PREDNISOLONE [Concomitant]
     Active Substance: PREDNISOLONE

REACTIONS (3)
  - Encephalitis viral [Recovered/Resolved]
  - Disease progression [Unknown]
  - Off label use [Unknown]
